FAERS Safety Report 19242589 (Version 1)
Quarter: 2021Q2

REPORT INFORMATION
  Report Type: Report from Study
  Country: GB (occurrence: GB)
  Receive Date: 20210510
  Receipt Date: 20210510
  Transmission Date: 20210717
  Serious: Yes (Other)
  Sender: FDA-Public Use
  Company Number: GB-JNJFOC-20210123533

PATIENT
  Sex: Male

DRUGS (11)
  1. STELARA [Suspect]
     Active Substance: USTEKINUMAB
  2. AMITRIPTYLINE [Concomitant]
     Active Substance: AMITRIPTYLINE
     Indication: PRODUCT USED FOR UNKNOWN INDICATION
  3. IVABRADINE [Concomitant]
     Active Substance: IVABRADINE
     Indication: PRODUCT USED FOR UNKNOWN INDICATION
  4. METHOTREXATE. [Concomitant]
     Active Substance: METHOTREXATE
     Indication: PRODUCT USED FOR UNKNOWN INDICATION
  5. MACROGOL COMP [Concomitant]
     Indication: PRODUCT USED FOR UNKNOWN INDICATION
     Route: 048
  6. EPLERENONE. [Concomitant]
     Active Substance: EPLERENONE
     Indication: PRODUCT USED FOR UNKNOWN INDICATION
  7. STELARA [Suspect]
     Active Substance: USTEKINUMAB
     Indication: PSORIASIS
     Route: 058
     Dates: start: 20170330
  8. BUMETANIDE. [Concomitant]
     Active Substance: BUMETANIDE
     Indication: PRODUCT USED FOR UNKNOWN INDICATION
  9. SACUBITRIL [Concomitant]
     Active Substance: SACUBITRIL
     Indication: PRODUCT USED FOR UNKNOWN INDICATION
  10. NEVIBOLOL DCI [Concomitant]
     Active Substance: NEBIVOLOL
     Indication: PRODUCT USED FOR UNKNOWN INDICATION
  11. FOLIC ACID. [Concomitant]
     Active Substance: FOLIC ACID
     Indication: PRODUCT USED FOR UNKNOWN INDICATION

REACTIONS (3)
  - Surgery [Unknown]
  - Psoriasis [Unknown]
  - Inappropriate schedule of product administration [Unknown]

NARRATIVE: CASE EVENT DATE: 20210407
